FAERS Safety Report 10186087 (Version 1)
Quarter: 2014Q2

REPORT INFORMATION
  Report Type: Other
  Country: GB (occurrence: GB)
  Receive Date: 20140521
  Receipt Date: 20140521
  Transmission Date: 20141212
  Serious: Yes (Death, Hospitalization)
  Sender: FDA-Public Use
  Company Number: GB-PERRIGO-14GB005086

PATIENT
  Age: 58 Year
  Sex: Male

DRUGS (6)
  1. NAPROXEN 250MG 16028/0144 [Suspect]
     Indication: OSTEOARTHRITIS
     Dosage: 500 MG, UNK
     Route: 065
     Dates: start: 201307
  2. ETHANOL [Suspect]
     Indication: ALCOHOL ABUSE
     Dosage: UNK, UNK
     Route: 048
  3. DICLOFENAC SODIUM [Suspect]
     Indication: OSTEOARTHRITIS
     Dosage: 50 MG, TID
     Route: 065
     Dates: start: 200806, end: 200811
  4. DICLOFENAC SODIUM [Suspect]
     Dosage: 50 MG, BID
     Route: 065
     Dates: start: 200811, end: 201307
  5. AMITRIPTYLINE [Concomitant]
     Indication: PRODUCT USED FOR UNKNOWN INDICATION
     Dosage: UNK
     Route: 065
     Dates: start: 201307
  6. CO-DYDRAMOL [Concomitant]
     Indication: PRODUCT USED FOR UNKNOWN INDICATION
     Dosage: UNK, UNK
     Route: 065
     Dates: start: 201307

REACTIONS (3)
  - Duodenal ulcer [Fatal]
  - Gastrointestinal haemorrhage [Fatal]
  - Drug ineffective [Unknown]
